FAERS Safety Report 11659891 (Version 4)
Quarter: 2024Q4

REPORT INFORMATION
  Report Type: Spontaneous
  Country: FR (occurrence: FR)
  Receive Date: 20151026
  Receipt Date: 20241230
  Transmission Date: 20250115
  Serious: Yes (Congenital Anomaly, Other)
  Sender: ABBVIE
  Company Number: FR-ABBVIE-15P-056-1487740-00

PATIENT
  Sex: Male
  Weight: 3 kg

DRUGS (4)
  1. VALPROATE SODIUM [Suspect]
     Active Substance: VALPROATE SODIUM
     Indication: Maternal exposure timing unspecified
     Route: 064
  2. FOLIC ACID [Suspect]
     Active Substance: FOLIC ACID
     Indication: Maternal exposure timing unspecified
     Route: 065
  3. RIVOTRIL [Suspect]
     Active Substance: CLONAZEPAM
     Indication: Maternal exposure timing unspecified
     Route: 065
  4. AMITRIPTYLINE HYDROCHLORIDE [Suspect]
     Active Substance: AMITRIPTYLINE HYDROCHLORIDE
     Indication: Maternal exposure timing unspecified
     Route: 065

REACTIONS (35)
  - Congenital neurological disorder [Unknown]
  - Neurodevelopmental disorder [Unknown]
  - Otitis media [Unknown]
  - Multiple congenital abnormalities [Unknown]
  - Prognathism [Unknown]
  - Congenital jaw malformation [Unknown]
  - Jaw disorder [Unknown]
  - Learning disorder [Unknown]
  - Gait disturbance [Unknown]
  - Speech disorder [Unknown]
  - Autism spectrum disorder [Unknown]
  - Melanocytic naevus [Unknown]
  - Hypotonia [Unknown]
  - Dysmorphism [Unknown]
  - Psychomotor retardation [Unknown]
  - Language disorder [Unknown]
  - Cognitive disorder [Unknown]
  - Coordination abnormal [Unknown]
  - Balance disorder [Unknown]
  - Social avoidant behaviour [Unknown]
  - Disturbance in attention [Unknown]
  - Encopresis [Unknown]
  - Frustration tolerance decreased [Unknown]
  - Autism spectrum disorder [Unknown]
  - Stereotypy [Unknown]
  - Sluggishness [Unknown]
  - Dysgraphia [Unknown]
  - Disorientation [Unknown]
  - Memory impairment [Unknown]
  - Fatigue [Unknown]
  - Otitis media [Unknown]
  - Hypoacusis [Unknown]
  - Anxiety [Unknown]
  - Foetal exposure during pregnancy [Unknown]
  - Body dysmorphic disorder [Unknown]

NARRATIVE: CASE EVENT DATE: 20100209
